FAERS Safety Report 9737091 (Version 1)
Quarter: 2013Q4

REPORT INFORMATION
  Report Type: Spontaneous
  Country: US (occurrence: US)
  Receive Date: 20131206
  Receipt Date: 20131206
  Transmission Date: 20140711
  Serious: Yes (Hospitalization)
  Sender: FDA-Public Use
  Company Number: US-PFIZER INC-2013345595

PATIENT
  Age: 54 Year
  Sex: Female
  Weight: 136 kg

DRUGS (5)
  1. DETROL LA [Suspect]
     Indication: HYPERTONIC BLADDER
     Dosage: 8 MG, 2X/DAY
  2. LIPITOR [Concomitant]
     Indication: BLOOD CHOLESTEROL INCREASED
     Dosage: 40 MG, 1X/DAY
  3. NEURONTIN [Concomitant]
     Indication: NEURALGIA
     Dosage: 300 MG, 2X/DAY
  4. NEURONTIN [Concomitant]
     Indication: HYPOAESTHESIA
  5. NEURONTIN [Concomitant]
     Indication: PAIN IN EXTREMITY

REACTIONS (1)
  - Transient ischaemic attack [Unknown]
